FAERS Safety Report 8269849-1 (Version None)
Quarter: 2012Q2

REPORT INFORMATION
  Report Type: 
  Country: None (occurrence: None)
  Receive Date: 20120410
  Receipt Date: 20120403
  Transmission Date: 20120825
  Serious: Yes (Death)
  Sender: FDA-Public Use
  Company Number: US-CELGENEUS-163-21880-11123541

PATIENT
  Sex: Male

DRUGS (4)
  1. REVLIMID [Suspect]
     Indication: MULTIPLE MYELOMA
     Dosage: 25 MILLIGRAM
     Route: 048
     Dates: start: 20081101
  2. REVLIMID [Suspect]
     Dosage: 25 MILLIGRAM
     Dates: start: 20111010, end: 20111110
  3. REVLIMID [Suspect]
     Dosage: 15MG-10MG
     Route: 048
     Dates: start: 20081201
  4. REVLIMID [Suspect]
     Dosage: 5MG-10MG
     Route: 048
     Dates: start: 20090901

REACTIONS (2)
  - MULTIPLE MYELOMA [None]
  - FAILURE TO THRIVE [None]
